FAERS Safety Report 10710837 (Version 2)
Quarter: 2015Q1

REPORT INFORMATION
  Report Type: Spontaneous
  Country: US (occurrence: None)
  Receive Date: 20150113
  Receipt Date: 20150126
  Transmission Date: 20150721
  Serious: Yes (Other)
  Sender: FDA-Public Use
  Company Number: 2015-US-000092

PATIENT
  Sex: Female
  Weight: 49 kg

DRUGS (7)
  1. MULTIVITAMIN (VITAMINS NOS) [Concomitant]
     Active Substance: VITAMINS
  2. XYREM [Suspect]
     Active Substance: SODIUM OXYBATE
     Indication: CATAPLEXY
     Route: 048
     Dates: start: 200303, end: 2003
  3. VITAMIN D3 (COLECALCIFEOL) [Concomitant]
  4. XYREM [Suspect]
     Active Substance: SODIUM OXYBATE
     Indication: NARCOLEPSY
     Route: 048
     Dates: start: 200303, end: 2003
  5. BORON [Concomitant]
     Active Substance: BORON
  6. MODAFINIL. [Concomitant]
     Active Substance: MODAFINIL
  7. NIFEDIPINE. [Concomitant]
     Active Substance: NIFEDIPINE

REACTIONS (3)
  - Rib fracture [None]
  - Osteopenia [None]
  - Osteoporosis [None]

NARRATIVE: CASE EVENT DATE: 2004
